FAERS Safety Report 6545468-X (Version None)
Quarter: 2010Q1

REPORT INFORMATION
  Report Type: 
  Country: None (occurrence: None)
  Receive Date: 20100121
  Receipt Date: 20100115
  Transmission Date: 20100710
  Serious: Yes (Death)
  Sender: FDA-Public Use
  Company Number: US-JNJFOC-20100106942

PATIENT
  Age: 69 Year
  Sex: Male

DRUGS (4)
  1. IBUPROFEN [Suspect]
     Indication: SUICIDE ATTEMPT
     Route: 048
  2. RISPERIDONE [Suspect]
     Indication: SUICIDE ATTEMPT
     Route: 048
  3. DIAZEPAM [Suspect]
     Indication: SUICIDE ATTEMPT
     Route: 048
  4. DULOXETINE [Suspect]
     Indication: SUICIDE ATTEMPT
     Route: 048

REACTIONS (1)
  - DRUG TOXICITY [None]
